FAERS Safety Report 6093301-5 (Version None)
Quarter: 2009Q1

REPORT INFORMATION
  Report Type: 
  Country: None (occurrence: None)
  Receive Date: 20090223
  Receipt Date: 20090213
  Transmission Date: 20090719
  Serious: Yes (Other)
  Sender: FDA-Public Use
  Company Number: 2009JP000853

PATIENT

DRUGS (2)
  1. PROGRAF [Suspect]
     Indication: BONE MARROW TRANSPLANT
     Dosage: 0.03MG/KG, CONTINUOUS, IV DRIP
     Route: 041
  2. METHOTREXATE [Concomitant]

REACTIONS (1)
  - THROMBOTIC MICROANGIOPATHY [None]
